FAERS Safety Report 12872493 (Version 4)
Quarter: 2018Q1

REPORT INFORMATION
  Report Type: Report from Study
  Country: US (occurrence: US)
  Receive Date: 20161021
  Receipt Date: 20180329
  Transmission Date: 20180508
  Serious: Yes (Hospitalization, Other)
  Sender: FDA-Public Use
  Company Number: US-JNJFOC-20160920866

PATIENT
  Age: 82 Year
  Sex: Female
  Weight: 53 kg

DRUGS (27)
  1. VITAMIN D3 [Concomitant]
     Active Substance: CHOLECALCIFEROL
  2. LISINOPRIL. [Concomitant]
     Active Substance: LISINOPRIL
  3. DICYCLOMINE [Concomitant]
     Active Substance: DICYCLOMINE HYDROCHLORIDE
  4. POTASSIUM CHLORIDE. [Concomitant]
     Active Substance: POTASSIUM CHLORIDE
  5. AMLODIPINE [Concomitant]
     Active Substance: AMLODIPINE BESYLATE
  6. NAMENDA [Concomitant]
     Active Substance: MEMANTINE HYDROCHLORIDE
  7. ATIVAN [Concomitant]
     Active Substance: LORAZEPAM
  8. PRILOSEC [Concomitant]
     Active Substance: OMEPRAZOLE MAGNESIUM
  9. IMBRUVICA [Suspect]
     Active Substance: IBRUTINIB
     Indication: CHRONIC LYMPHOCYTIC LEUKAEMIA
     Route: 048
     Dates: start: 20160908
  10. FERROUS SULFATE. [Concomitant]
     Active Substance: FERROUS SULFATE
  11. GLIMEPIRIDE. [Concomitant]
     Active Substance: GLIMEPIRIDE
  12. TOPROL XL [Concomitant]
     Active Substance: METOPROLOL SUCCINATE
  13. CO-Q10 [Concomitant]
  14. IMBRUVICA [Suspect]
     Active Substance: IBRUTINIB
     Indication: CHRONIC LYMPHOCYTIC LEUKAEMIA
     Route: 048
     Dates: start: 20161003
  15. ALLOPURINOL. [Concomitant]
     Active Substance: ALLOPURINOL
  16. ESZOPICLONE. [Concomitant]
     Active Substance: ESZOPICLONE
  17. MOMETASONE [Concomitant]
     Active Substance: MOMETASONE
  18. NORCO [Concomitant]
     Active Substance: ACETAMINOPHEN\HYDROCODONE BITARTRATE
  19. SYNTHROID [Concomitant]
     Active Substance: LEVOTHYROXINE SODIUM
  20. HYDRALAZINE [Concomitant]
     Active Substance: HYDRALAZINE HYDROCHLORIDE
  21. ELAVIL [Concomitant]
     Active Substance: AMITRIPTYLINE HYDROCHLORIDE
  22. MULTIVITAMINS [Concomitant]
     Active Substance: VITAMINS
  23. IRON [Concomitant]
     Active Substance: IRON
  24. LASIX [Concomitant]
     Active Substance: FUROSEMIDE
  25. CYANOCOBALAMINE [Concomitant]
     Active Substance: CYANOCOBALAMIN
  26. ARICEPT [Concomitant]
     Active Substance: DONEPEZIL HYDROCHLORIDE
  27. ZETIA [Concomitant]
     Active Substance: EZETIMIBE

REACTIONS (11)
  - Mobility decreased [Recovered/Resolved]
  - Urinary tract infection [Unknown]
  - Asthenia [Unknown]
  - Weight decreased [Unknown]
  - Decreased appetite [Unknown]
  - Arrhythmia [Unknown]
  - Rheumatoid arthritis [Unknown]
  - Blood glucose decreased [Unknown]
  - Dehydration [Recovered/Resolved]
  - Nausea [Not Recovered/Not Resolved]
  - Rash [Unknown]

NARRATIVE: CASE EVENT DATE: 20160913
